FAERS Safety Report 24153521 (Version 2)
Quarter: 2024Q3

REPORT INFORMATION
  Report Type: Spontaneous
  Country: US (occurrence: US)
  Receive Date: 20240730
  Receipt Date: 20240801
  Transmission Date: 20241016
  Serious: Yes (Hospitalization, Other)
  Sender: MERCK
  Company Number: US-009507513-2407USA014988

PATIENT
  Age: 55 Year
  Sex: Female

DRUGS (16)
  1. KEYTRUDA [Suspect]
     Active Substance: PEMBROLIZUMAB
     Indication: Thyroid cancer
     Dosage: UNK, EVERY 6 WEEKS
  2. CABOMETYX [Suspect]
     Active Substance: CABOZANTINIB S-MALATE
     Indication: Thyroid cancer
     Dosage: 40 MILLIGRAM, QD
     Route: 048
     Dates: start: 20231220
  3. CABOMETYX [Suspect]
     Active Substance: CABOZANTINIB S-MALATE
     Dosage: 40 MILLIGRAM, QD
     Route: 048
     Dates: end: 20240201
  4. CABOMETYX [Suspect]
     Active Substance: CABOZANTINIB S-MALATE
     Dosage: 40 MILLIGRAM, QD, FOR 2 WEEKS ON AN THEN 1 OFF
     Route: 048
     Dates: start: 20240220
  5. CALCIUM\VITAMIN D [Concomitant]
     Active Substance: CALCIUM\VITAMIN D
  6. POTASSIUM [Concomitant]
     Active Substance: POTASSIUM
  7. APIXABAN [Concomitant]
     Active Substance: APIXABAN
  8. SOTALOL [Concomitant]
     Active Substance: SOTALOL
  9. METHADONE [Concomitant]
     Active Substance: METHADONE HYDROCHLORIDE
  10. ZINC SULFATE [Concomitant]
     Active Substance: ZINC SULFATE
  11. ATORVASTATIN [Concomitant]
     Active Substance: ATORVASTATIN
  12. LEVOTHYROXINE [Concomitant]
     Active Substance: LEVOTHYROXINE\LEVOTHYROXINE SODIUM
  13. SENNA [Concomitant]
     Active Substance: SENNA LEAF\SENNOSIDES\SENNOSIDES A AND B
  14. DILTIAZEM [Concomitant]
     Active Substance: DILTIAZEM
  15. LISINOPRIL [Concomitant]
     Active Substance: LISINOPRIL
  16. NIFEDIPINE [Concomitant]
     Active Substance: NIFEDIPINE

REACTIONS (16)
  - Atrial fibrillation [Recovering/Resolving]
  - Malignant neoplasm progression [Not Recovered/Not Resolved]
  - Ocular neoplasm [Not Recovered/Not Resolved]
  - Blood pressure increased [Recovering/Resolving]
  - Taste disorder [Recovering/Resolving]
  - Oral discomfort [Recovering/Resolving]
  - Blood magnesium decreased [Not Recovered/Not Resolved]
  - Dysphonia [Recovering/Resolving]
  - Constipation [Recovering/Resolving]
  - Weight decreased [Not Recovered/Not Resolved]
  - Diarrhoea [Recovered/Resolved]
  - Abdominal pain upper [Not Recovered/Not Resolved]
  - Nausea [Recovered/Resolved]
  - Asthenia [Recovering/Resolving]
  - Oral pain [Not Recovered/Not Resolved]
  - Product use issue [Unknown]

NARRATIVE: CASE EVENT DATE: 20230101
